FAERS Safety Report 5960256-0 (Version None)
Quarter: 2008Q4

REPORT INFORMATION
  Report Type: 
  Country: None (occurrence: None)
  Receive Date: 20081120
  Receipt Date: 20081110
  Transmission Date: 20090506
  Serious: Yes (Life-Threatening)
  Sender: FDA-Public Use
  Company Number: IT-BAYER-200816179GPV

PATIENT
  Age: 73 Year
  Sex: Male

DRUGS (1)
  1. ULTRAVIST 370 [Suspect]
     Indication: COMPUTERISED TOMOGRAM THORAX
     Route: 041
     Dates: start: 20080403, end: 20080403

REACTIONS (4)
  - BRADYCARDIA [None]
  - CYANOSIS [None]
  - DERMATITIS ALLERGIC [None]
  - RESPIRATORY ARREST [None]
